FAERS Safety Report 4656988-7 (Version None)
Quarter: 2005Q2

REPORT INFORMATION
  Report Type: 
  Country: None (occurrence: None)
  Receive Date: 20050506
  Receipt Date: 20050428
  Transmission Date: 20051028
  Serious: Yes (Hospitalization, Disabling)
  Sender: FDA-Public Use
  Company Number: 2005066799

PATIENT
  Age: 74 Year
  Sex: Female

DRUGS (7)
  1. LIPITOR [Suspect]
     Indication: HYPERCHOLESTEROLAEMIA
     Dosage: 20 MG (20 MG, 1 IN 1 D),ORAL
     Route: 048
     Dates: start: 19971221, end: 19980108
  2. TEMAZEPAM [Concomitant]
  3. SOTALOL HCL [Concomitant]
  4. FUROSEMIDE [Concomitant]
  5. NITROGLYCERIN [Concomitant]
  6. LISINOPRIL [Concomitant]
  7. SIMVASTATIN [Concomitant]

REACTIONS (4)
  - DIFFICULTY IN WALKING [None]
  - HAEMATURIA [None]
  - MUSCULAR WEAKNESS [None]
  - RHABDOMYOLYSIS [None]
